FAERS Safety Report 22597557 (Version 1)
Quarter: 2023Q2

REPORT INFORMATION
  Report Type: Spontaneous
  Country: US (occurrence: US)
  Receive Date: 20230614
  Receipt Date: 20230614
  Transmission Date: 20230722
  Serious: No
  Sender: FDA-Public Use
  Company Number: US-ENDO PHARMACEUTICALS INC-2022-004170

PATIENT
  Age: 8 Year
  Sex: Male
  Weight: 68.481 kg

DRUGS (6)
  1. SUPPRELIN LA [Suspect]
     Active Substance: HISTRELIN ACETATE
     Indication: Precocious puberty
     Dosage: UNK UNKNOWN, UNKNOWN
     Route: 065
     Dates: start: 202204
  2. SUPPRELIN LA [Suspect]
     Active Substance: HISTRELIN ACETATE
     Indication: Precocious puberty
     Dosage: UNK UNKNOWN, UNKNOWN
     Route: 065
     Dates: start: 202204
  3. SUPPRELIN LA [Suspect]
     Active Substance: HISTRELIN ACETATE
     Indication: Hyperpituitarism
  4. SUPPRELIN LA [Suspect]
     Active Substance: HISTRELIN ACETATE
     Indication: Hyperpituitarism
  5. SUPPRELIN LA [Suspect]
     Active Substance: HISTRELIN ACETATE
     Indication: Adrenogenital syndrome
  6. SUPPRELIN LA [Suspect]
     Active Substance: HISTRELIN ACETATE
     Indication: Adrenogenital syndrome

REACTIONS (5)
  - Discomfort [Unknown]
  - Device extrusion [Unknown]
  - Implant site pain [Unknown]
  - Implant site discolouration [Unknown]
  - Off label use [Unknown]

NARRATIVE: CASE EVENT DATE: 20220401
